FAERS Safety Report 9581825 (Version 1)
Quarter: 2013Q4

REPORT INFORMATION
  Report Type: Spontaneous
  Country: US (occurrence: US)
  Receive Date: 20131002
  Receipt Date: 20131002
  Transmission Date: 20140711
  Serious: Yes (Other)
  Sender: FDA-Public Use
  Company Number: ALCN2013US004881

PATIENT
  Age: 62 Year
  Sex: Male

DRUGS (1)
  1. MAXITROL [Suspect]
     Indication: POSTOPERATIVE CARE
     Route: 047

REACTIONS (3)
  - Intraocular pressure increased [Recovered/Resolved]
  - Visual acuity reduced [Recovered/Resolved]
  - Eye pain [Not Recovered/Not Resolved]
